FAERS Safety Report 5093941-6 (Version None)
Quarter: 2006Q3

REPORT INFORMATION
  Report Type: 
  Country: None (occurrence: None)
  Receive Date: 20060831
  Receipt Date: 20040202
  Transmission Date: 20061208
  Serious: Yes (Other)
  Sender: FDA-Public Use
  Company Number: 2004AP00665

PATIENT
  Age: 5584 Day
  Sex: Female

DRUGS (7)
  1. BUDESONIDE [Suspect]
     Indication: ASTHMA
     Route: 055
     Dates: end: 19990419
  2. NEDOCROMIL SODIUM [Suspect]
     Indication: ASTHMA
     Dosage: USED IN THE 6 MONTHS PRIOR TO STUDY
     Route: 055
  3. PREDNISONE TAB [Concomitant]
     Indication: ASTHMA
     Dosage: 38 DAYS OF THERAPY DURING THIS PERIOD
     Dates: start: 19950830, end: 19980713
  4. BECLOMETHASONE DIPROPIONATE [Concomitant]
     Indication: ASTHMA
     Route: 055
     Dates: start: 19980702, end: 19981108
  5. BECLOMETHASONE DIPROPIONATE [Concomitant]
     Route: 055
     Dates: start: 19981109
  6. ORAL CORTICOSTEROIDS [Concomitant]
     Indication: ASTHMA
     Dosage: 4 DAYS OF THERAPY IN 6 MONTHS PRIOR TO STUDY START
     Route: 048
  7. NASAL STEROIDS [Concomitant]
     Indication: NASAL DISORDER
     Route: 045

REACTIONS (2)
  - CATARACT SUBCAPSULAR [None]
  - DRUG EFFECT DECREASED [None]
